FAERS Safety Report 5620474-8 (Version None)
Quarter: 2008Q1

REPORT INFORMATION
  Report Type: 
  Country: None (occurrence: None)
  Receive Date: 20080208
  Receipt Date: 20080201
  Transmission Date: 20080703
  Serious: Yes (Other)
  Sender: FDA-Public Use
  Company Number: AU-BOEHRINGER INGELHEIM GMBH, GERMANY-2008-DE-00672GD

PATIENT

DRUGS (12)
  1. CLONIDINE [Suspect]
     Indication: ANALGESIC THERAPY
     Dosage: AVERAGE DOSAGE OF 54 PATIENTS: 250 +/- 75 MCG
  2. MORPHINE [Suspect]
     Indication: ANALGESIC THERAPY
     Dosage: AVERAGE DOSAGE OF 54 PATIENTS: 6 +/- 3 MG
  3. MORPHINE [Suspect]
     Dosage: 1 +/- 0.1 MG BOLUS (LOCKOUT 5 MIN)
  4. ACETAMINOPHEN [Suspect]
     Indication: ANALGESIC THERAPY
  5. ACETAMINOPHEN [Suspect]
     Dosage: AVERAGE DOSAGE OF 54 PATIENTS: 3 +/- 1 MG
     Route: 048
  6. KETAMINE HCL [Suspect]
     Indication: ANALGESIC THERAPY
     Dosage: AVERAGE DOSAGE OF 54 PATIENTS: 10 +/- 10 MG
  7. KETAMINE HCL [Suspect]
     Dosage: 1.2 +/- 0.4 MG BOLUS (LOCKOUT 5 MIN)
  8. TRAMADOL HCL [Suspect]
     Indication: ANALGESIC THERAPY
     Dosage: AVERAGE DOSAGE OF 54 PATIENTS: 225 +/- 50 MG
  9. TRAMADOL HCL [Suspect]
     Dosage: AVERAGE DOSAGE OF 54 PATIENTS: 200 +/- 100 MG
     Route: 048
  10. NSAID [Suspect]
     Indication: ANALGESIC THERAPY
     Dosage: 1 DOSE
  11. ANTIBIOTICS [Concomitant]
     Indication: PROPHYLAXIS
  12. HEPARIN [Concomitant]
     Indication: THROMBOSIS PROPHYLAXIS
     Route: 058

REACTIONS (4)
  - ATELECTASIS [None]
  - HYPOVENTILATION [None]
  - SEDATION [None]
  - SOMNOLENCE [None]
